FAERS Safety Report 9290140 (Version 1)
Quarter: 2013Q2

REPORT INFORMATION
  Report Type: Spontaneous
  Country: US (occurrence: US)
  Receive Date: 20130515
  Receipt Date: 20130515
  Transmission Date: 20140414
  Serious: Yes (Other)
  Sender: FDA-Public Use
  Company Number: US-JNJFOC-20130304285

PATIENT
  Age: 57 Year
  Sex: Female

DRUGS (10)
  1. LEVAQUIN [Suspect]
     Indication: PRODUCT USED FOR UNKNOWN INDICATION
     Dosage: 4 X 1 WHEN NEEDED
     Route: 042
     Dates: start: 20040331, end: 20040331
  2. LEVAQUIN [Suspect]
     Indication: DIVERTICULUM
     Route: 048
  3. TAMBOCOR [Suspect]
     Indication: VENTRICULAR ARRHYTHMIA
     Route: 065
     Dates: start: 20000223
  4. ESTRADIOL [Concomitant]
     Indication: MENOPAUSE
     Route: 065
     Dates: start: 2002
  5. SYNTHROID [Concomitant]
     Indication: HYPOTHYROIDISM
     Route: 065
     Dates: start: 19990611
  6. MAGNESIUM OXIDE [Concomitant]
     Route: 065
     Dates: start: 20000223
  7. CALCIUM [Concomitant]
     Route: 065
  8. SOY WITH VITAMIN E [Concomitant]
     Indication: HOT FLUSH
     Route: 065
  9. ACETYLSALICYLIC ACID [Concomitant]
     Route: 065
  10. FIORICET [Concomitant]
     Indication: MIGRAINE
     Route: 065
     Dates: start: 1970

REACTIONS (6)
  - Ventricular arrhythmia [Recovered/Resolved]
  - Ventricular extrasystoles [Recovered/Resolved]
  - Dyspnoea [Recovered/Resolved]
  - Vascular pain [Recovered/Resolved]
  - Injection site streaking [Recovered/Resolved]
  - Intentional drug misuse [Unknown]
